FAERS Safety Report 22219798 (Version 6)
Quarter: 2024Q1

REPORT INFORMATION
  Report Type: Spontaneous
  Country: US (occurrence: US)
  Receive Date: 20230417
  Receipt Date: 20240311
  Transmission Date: 20240410
  Serious: Yes (Hospitalization, Other)
  Sender: FDA-Public Use
  Company Number: US-BRISTOL-MYERS SQUIBB COMPANY-2023-053949

PATIENT
  Age: 71 Year
  Sex: Female
  Weight: 69.4 kg

DRUGS (3)
  1. POMALYST [Suspect]
     Active Substance: POMALIDOMIDE
     Indication: Plasma cell myeloma
     Dosage: 3 W , 1 W OFF
     Route: 048
  2. POMALYST [Suspect]
     Active Substance: POMALIDOMIDE
     Dosage: 21D ON 7D OFF, DAILY FOR 21 DAYS
     Route: 048
     Dates: start: 20230301, end: 20230718
  3. POMALYST [Suspect]
     Active Substance: POMALIDOMIDE

REACTIONS (15)
  - Fatigue [Unknown]
  - Gastrointestinal disorder [Unknown]
  - Chest pain [Unknown]
  - Dyspnoea [Unknown]
  - Muscle spasms [Recovering/Resolving]
  - Rib fracture [Unknown]
  - Pulmonary fibrosis [Unknown]
  - Constipation [Unknown]
  - Diarrhoea [Unknown]
  - Uterine haemorrhage [Recovered/Resolved]
  - Peripheral swelling [Unknown]
  - Hypoaesthesia [Unknown]
  - Anal haemorrhage [Recovered/Resolved]
  - Blood glucose abnormal [Unknown]
  - Off label use [Unknown]

NARRATIVE: CASE EVENT DATE: 20230401
